FAERS Safety Report 8776286 (Version 1)
Quarter: 2012Q4

REPORT INFORMATION
  Report Type: 
  Country: US (occurrence: US)
  Receive Date: 20120910
  Receipt Date: 20120910
  Transmission Date: 20130627
  Serious: No
  Sender: FDA-Public Use
  Company Number: US-PFIZER INC-2012220423

PATIENT
  Sex: Female

DRUGS (3)
  1. EFFEXOR XR [Suspect]
     Indication: ANXIETY
     Dosage: 75 mg (one capsule), UNK
  2. EFFEXOR XR [Suspect]
     Indication: PANIC ATTACK
     Dosage: 75 mg, UNK (three 75 mg capsules)
  3. EFFEXOR XR [Suspect]
     Dosage: 75 mg, per day

REACTIONS (7)
  - Influenza [Unknown]
  - Nausea [Unknown]
  - Malaise [Unknown]
  - Asthenia [Unknown]
  - Decreased appetite [Unknown]
  - Withdrawal syndrome [Unknown]
  - Fatigue [Unknown]
